FAERS Safety Report 5960820-9 (Version None)
Quarter: 2008Q4

REPORT INFORMATION
  Report Type: 
  Country: None (occurrence: None)
  Receive Date: 20081121
  Receipt Date: 20081112
  Transmission Date: 20090506
  Serious: Yes (Other)
  Sender: FDA-Public Use
  Company Number: US-RANBAXY-2008US-19273

PATIENT

DRUGS (2)
  1. ISOTRETINOIN [Suspect]
     Indication: DRUG USE FOR UNKNOWN INDICATION
     Dosage: 20 MG, UNK
     Route: 048
  2. ISOTRETINOIN [Suspect]
     Dosage: 40 MG, UNK
     Route: 048

REACTIONS (2)
  - INFECTIOUS MONONUCLEOSIS [None]
  - SPLENOMEGALY [None]
